FAERS Safety Report 5538447-2 (Version None)
Quarter: 2007Q4

REPORT INFORMATION
  Report Type: 
  Country: None (occurrence: None)
  Receive Date: 20071205
  Receipt Date: 20071120
  Transmission Date: 20080405
  Serious: Yes (Death, Hospitalization)
  Sender: FDA-Public Use
  Company Number: 2007002327

PATIENT
  Age: 70 Year
  Sex: Male
  Weight: 68.7 kg

DRUGS (1)
  1. MACUGEN [Suspect]
     Indication: MACULAR DEGENERATION
     Dosage: 0.3 MG, Q6W; INTRA-VITREAL
     Route: 009
     Dates: start: 20061116, end: 20071018

REACTIONS (2)
  - ARTERIOSCLEROSIS OBLITERANS [None]
  - CONDITION AGGRAVATED [None]
